FAERS Safety Report 9154096 (Version 1)
Quarter: 2013Q1

REPORT INFORMATION
  Report Type: Spontaneous
  Country: US (occurrence: BE)
  Receive Date: 20130311
  Receipt Date: 20130311
  Transmission Date: 20140127
  Serious: Yes (Other)
  Sender: FDA-Public Use
  Company Number: US-SANOFI-AVENTIS-2013SA019887

PATIENT
  Age: 23 Year
  Sex: Female

DRUGS (1)
  1. PRIMAQUINE PHOSPHATE [Suspect]
     Indication: PRODUCT USED FOR UNKNOWN INDICATION
     Route: 065

REACTIONS (6)
  - Eye disorder [Unknown]
  - Visual impairment [Unknown]
  - Jaw disorder [Unknown]
  - Tongue spasm [Unknown]
  - Dizziness [Unknown]
  - Disorientation [Unknown]
